FAERS Safety Report 8313631-3 (Version None)
Quarter: 2012Q2

REPORT INFORMATION
  Report Type: 
  Country: None (occurrence: None)
  Receive Date: 20120426
  Receipt Date: 20120419
  Transmission Date: 20120825
  Serious: Yes (Other)
  Sender: FDA-Public Use
  Company Number: JP-ASTELLAS-2012JP003482

PATIENT
  Sex: Male

DRUGS (2)
  1. TAMSULOSIN HCL [Suspect]
     Dosage: 0.2 MG, UNKNOWN/D
     Route: 048
  2. VESICARE [Suspect]
     Route: 048

REACTIONS (1)
  - AGEUSIA [None]
